FAERS Safety Report 4956451-X (Version None)
Quarter: 2006Q1

REPORT INFORMATION
  Report Type: 
  Country: None (occurrence: None)
  Receive Date: 20060328
  Receipt Date: 20060328
  Transmission Date: 20060701
  Serious: Yes (Hospitalization)
  Sender: FDA-Public Use
  Company Number: None

PATIENT
  Sex: Male
  Weight: 131.5431 kg

DRUGS (2)
  1. MAXIPIME [Suspect]
     Indication: OSTEOMYELITIS
     Dosage: 2 GRAMS EVERY 12 HOURS IV
     Route: 042
     Dates: start: 20060209, end: 20060314
  2. VANCOMYCIN [Concomitant]

REACTIONS (2)
  - NEPHRITIS INTERSTITIAL [None]
  - RENAL FAILURE ACUTE [None]
